FAERS Safety Report 25029380 (Version 3)
Quarter: 2025Q2

REPORT INFORMATION
  Report Type: Report from Study
  Country: US (occurrence: US)
  Receive Date: 20250303
  Receipt Date: 20250415
  Transmission Date: 20250717
  Serious: Yes (Other)
  Sender: ABBVIE
  Company Number: US-ABBVIE-6105120

PATIENT
  Age: 43 Year
  Sex: Female
  Weight: 40.823 kg

DRUGS (2)
  1. CREON [Suspect]
     Active Substance: PANCRELIPASE AMYLASE\PANCRELIPASE LIPASE\PANCRELIPASE PROTEASE
     Indication: Pancreatic failure
     Dosage: 1 CAP WITH EVERY MEALS AND SNACK? FORM STRENGTH: 12000? FORM STRENGTH UNITS: UNIT
     Route: 048
     Dates: start: 20240909
  2. CREON [Suspect]
     Active Substance: PANCRELIPASE AMYLASE\PANCRELIPASE LIPASE\PANCRELIPASE PROTEASE
     Indication: Pancreatic failure
     Route: 048

REACTIONS (8)
  - Pancreatolithiasis [Recovering/Resolving]
  - Malabsorption [Recovered/Resolved]
  - Nasopharyngitis [Recovered/Resolved]
  - Defaecation urgency [Unknown]
  - Cholelithiasis [Recovering/Resolving]
  - Dyspepsia [Recovered/Resolved]
  - Biliary obstruction [Not Recovered/Not Resolved]
  - Pancreatitis [Unknown]

NARRATIVE: CASE EVENT DATE: 20240101
